FAERS Safety Report 23655203 (Version 1)
Quarter: 2024Q1

REPORT INFORMATION
  Report Type: Spontaneous
  Country: JP (occurrence: JP)
  Receive Date: 20240320
  Receipt Date: 20240320
  Transmission Date: 20240410
  Serious: Yes (Death)
  Sender: FDA-Public Use
  Company Number: JP-BIOMARINAP-JP-2024-156632

PATIENT

DRUGS (2)
  1. SAPROPTERIN DIHYDROCHLORIDE [Suspect]
     Active Substance: SAPROPTERIN DIHYDROCHLORIDE
     Indication: Phenylketonuria
     Dosage: 600 MILLIGRAM, QD
     Route: 064
     Dates: start: 20201211
  2. PHENYLALANINE [Concomitant]
     Active Substance: PHENYLALANINE
     Indication: Phenylketonuria

REACTIONS (2)
  - Death [Fatal]
  - Foetal exposure during pregnancy [Unknown]

NARRATIVE: CASE EVENT DATE: 20231124
